FAERS Safety Report 5031329-4 (Version None)
Quarter: 2006Q2

REPORT INFORMATION
  Report Type: 
  Country: None (occurrence: None)
  Receive Date: 20060504
  Receipt Date: 20060119
  Transmission Date: 20061013
  Serious: Yes (Disabling, Other)
  Sender: FDA-Public Use
  Company Number: COV1-2005-00001

PATIENT
  Age: 75 Year
  Sex: Male
  Weight: 86 kg

DRUGS (6)
  1. XAGRID 0.5MG(ANAGRELIDE HYDROCHLORIDE 0.5MG)(ANAGRELIDE HYDROCHLORIDE) [Suspect]
     Dosage: 0.5 MG,3X/DAY:TID, ORAL
     Route: 048
     Dates: start: 20050330, end: 20051017
  2. HYDROXYUREA [Concomitant]
  3. ASPIRIN [Concomitant]
  4. METOPROLOL SUCCINATE [Concomitant]
  5. SIMVASTATIN [Concomitant]
  6. ALLOPURINOL [Concomitant]

REACTIONS (2)
  - ATRIAL FIBRILLATION [None]
  - CARDIAC FAILURE [None]
